FAERS Safety Report 23742646 (Version 1)
Quarter: 2024Q2

REPORT INFORMATION
  Report Type: Spontaneous
  Country: US (occurrence: None)
  Receive Date: 20240412
  Receipt Date: 20240412
  Transmission Date: 20240715
  Serious: Yes (Other)
  Sender: FDA-Public Use
  Company Number: None

PATIENT
  Age: 18 Year
  Sex: Female
  Weight: 78.3 kg

DRUGS (3)
  1. INFLECTRA [Suspect]
     Active Substance: INFLIXIMAB-DYYB
     Indication: Hidradenitis
     Dosage: FREQUENCY : MONTHLY;?
     Route: 042
     Dates: start: 20240410
  2. DIPHENHYDRAMINE [Concomitant]
  3. SOLU-MEDROL [Concomitant]

REACTIONS (3)
  - Infusion related reaction [None]
  - Pruritus [None]
  - Rash [None]

NARRATIVE: CASE EVENT DATE: 20240410
